FAERS Safety Report 6838752-3 (Version None)
Quarter: 2010Q3

REPORT INFORMATION
  Report Type: 
  Country: None (occurrence: None)
  Receive Date: 20100713
  Receipt Date: 20070611
  Transmission Date: 20110219
  Serious: Yes (Other)
  Sender: FDA-Public Use
  Company Number: US-PFIZER INC-2007039522

PATIENT
  Sex: Female
  Weight: 66.7 kg

DRUGS (10)
  1. VARENICLINE [Suspect]
     Indication: SMOKING CESSATION THERAPY
     Dates: start: 20070506, end: 20070510
  2. TOPAMAX [Concomitant]
  3. CLARITIN [Concomitant]
     Indication: SEASONAL ALLERGY
  4. CLARITIN [Concomitant]
     Indication: ALLERGY TO ANIMAL
  5. ESTRATEST [Concomitant]
  6. ALL OTHER THERAPEUTIC PRODUCTS [Concomitant]
  7. ACETYLSALICYLIC ACID [Concomitant]
  8. VITAMINS [Concomitant]
  9. MINERALS NOS [Concomitant]
  10. PROTONIX [Concomitant]
     Indication: GASTROOESOPHAGEAL REFLUX DISEASE

REACTIONS (1)
  - RASH [None]
